FAERS Safety Report 9474821 (Version 12)
Quarter: 2015Q4

REPORT INFORMATION
  Report Type: Spontaneous
  Country: CA (occurrence: CA)
  Receive Date: 20130823
  Receipt Date: 20151113
  Transmission Date: 20160305
  Serious: Yes (Hospitalization, Other)
  Sender: FDA-Public Use
  Company Number: CA-ROCHE-1262783

PATIENT
  Age: 15 Year
  Sex: Female
  Weight: 96 kg

DRUGS (12)
  1. XOLAIR [Suspect]
     Active Substance: OMALIZUMAB
     Indication: ASTHMA
     Route: 058
     Dates: start: 20121108
  2. XOLAIR [Suspect]
     Active Substance: OMALIZUMAB
     Route: 058
     Dates: start: 20130716
  3. NEXIUM [Concomitant]
     Active Substance: ESOMEPRAZOLE MAGNESIUM
  4. CETIRIZINE [Concomitant]
     Active Substance: CETIRIZINE HYDROCHLORIDE
  5. XOLAIR [Suspect]
     Active Substance: OMALIZUMAB
     Route: 058
     Dates: start: 20130814
  6. XOLAIR [Suspect]
     Active Substance: OMALIZUMAB
     Route: 058
     Dates: start: 201502
  7. ADVAIR HFA [Concomitant]
     Active Substance: FLUTICASONE PROPIONATE\SALMETEROL XINAFOATE
  8. XOLAIR [Suspect]
     Active Substance: OMALIZUMAB
     Route: 058
     Dates: start: 20141125
  9. BETAMETHASONE DIPROPIONATE/CLOTRIMAZOLE/GENTAMICIN SULFATE [Concomitant]
  10. SINGULAIR [Concomitant]
     Active Substance: MONTELUKAST SODIUM
  11. SYMBICORT [Concomitant]
     Active Substance: BUDESONIDE\FORMOTEROL FUMARATE DIHYDRATE
  12. NASONEX [Concomitant]
     Active Substance: MOMETASONE FUROATE

REACTIONS (18)
  - Radius fracture [Unknown]
  - Ear congestion [Unknown]
  - Weight increased [Unknown]
  - Viral sinusitis [Recovering/Resolving]
  - Concussion [Unknown]
  - Discomfort [Unknown]
  - Asthma [Unknown]
  - Gastric disorder [Unknown]
  - Nasal congestion [Unknown]
  - Loss of consciousness [Unknown]
  - Ligament sprain [Unknown]
  - Functional residual capacity decreased [Unknown]
  - Joint dislocation [Unknown]
  - Weight decreased [Unknown]
  - Fall [Unknown]
  - Hypersensitivity [Unknown]
  - Obstructive airways disorder [Unknown]
  - Malaise [Unknown]

NARRATIVE: CASE EVENT DATE: 20130718
